FAERS Safety Report 9727473 (Version 2)
Quarter: 2013Q4

REPORT INFORMATION
  Report Type: Spontaneous
  Country: JP (occurrence: None)
  Receive Date: 20131127
  Receipt Date: 20131223
  Transmission Date: 20140711
  Serious: Yes (Hospitalization)
  Sender: FDA-Public Use
  Company Number: 2013-003684

PATIENT
  Age: 70 Year
  Sex: Female

DRUGS (7)
  1. BENET (RISEDRONATE SODIUM) TABLET [Suspect]
     Indication: OSTEOPOROSIS
     Route: 048
     Dates: start: 20130226, end: 20131023
  2. BAYASPIRIN (ACETYLSALICYLIC ACID) (ACETYLSALICYLIC ACID) [Suspect]
     Route: 048
     Dates: start: 20120721, end: 20131025
  3. CRESTOR (ROSUVASTATIN CALCIUM) [Suspect]
     Route: 048
     Dates: start: 20130509, end: 20131025
  4. PREDONINE  /00016201/ (PREDNISOLONE) [Concomitant]
  5. PREDNISOLONE (PREDNISOLONE) [Concomitant]
  6. PLAVIX (CLOPIDOGREL BISULFATE) [Concomitant]
  7. FRANDOL (ISOSORBIDE DINITRATE) [Concomitant]

REACTIONS (4)
  - Stomatitis [None]
  - Decreased appetite [None]
  - Mouth haemorrhage [None]
  - Mouth ulceration [None]
